FAERS Safety Report 6429043-3 (Version None)
Quarter: 2009Q4

REPORT INFORMATION
  Report Type: 
  Country: None (occurrence: None)
  Receive Date: 20091102
  Receipt Date: 20091019
  Transmission Date: 20100525
  Serious: Yes (Other)
  Sender: FDA-Public Use
  Company Number: 2009SP032746

PATIENT
  Sex: Female
  Weight: 71.6683 kg

DRUGS (3)
  1. NUVARING [Suspect]
     Indication: DRUG USE FOR UNKNOWN INDICATION
     Dates: start: 20020101, end: 20060101
  2. ALBUTEROL [Concomitant]
  3. ZOLOFT [Concomitant]

REACTIONS (7)
  - DYSPNOEA [None]
  - HYPERTENSION [None]
  - MIGRAINE [None]
  - OVARIAN CYST [None]
  - PREGNANCY WITH CONTRACEPTIVE DEVICE [None]
  - THROMBOSIS [None]
  - UNINTENDED PREGNANCY [None]
